FAERS Safety Report 6913496-8 (Version None)
Quarter: 2010Q3

REPORT INFORMATION
  Report Type: 
  Country: None (occurrence: None)
  Receive Date: 20100719
  Receipt Date: 20100426
  Transmission Date: 20110219
  Serious: Yes (Other)
  Sender: FDA-Public Use
  Company Number: US-WYE-H14944510

PATIENT
  Age: 29 Year
  Sex: Male
  Weight: 79.45 kg

DRUGS (2)
  1. ADVIL [Suspect]
     Indication: MYALGIA
     Dosage: 2 TABLETS TWICE DAILY AS NEEDED, ORAL
     Route: 048
     Dates: start: 20100201, end: 20100301
  2. ADVIL [Suspect]
     Indication: PAIN
     Dosage: 2 TABLETS TWICE DAILY AS NEEDED, ORAL
     Route: 048
     Dates: start: 20100201, end: 20100301

REACTIONS (1)
  - EYELID OEDEMA [None]
